FAERS Safety Report 7970418-9 (Version None)
Quarter: 2011Q4

REPORT INFORMATION
  Report Type: 
  Country: None (occurrence: None)
  Receive Date: 20111122
  Receipt Date: 20110802
  Transmission Date: 20120403
  Serious: No
  Sender: FDA-Public Use
  Company Number: PHEH2011US00594

PATIENT
  Sex: Female

DRUGS (10)
  1. TREXIMET [Concomitant]
  2. GILENYA [Suspect]
     Indication: MULTIPLE SCLEROSIS
     Dosage: 1 DF, DAILY, ORAL
     Route: 048
  3. CYMBALTA [Concomitant]
  4. FISH OIL (FISH OIL) [Concomitant]
  5. BACLOFEN [Concomitant]
  6. MULTIVITAMINS (ASCORBIC ACID, ERGOCALCIFEROL, FOLIC AICD, NICOTINAMIDE [Concomitant]
  7. VITAMIN D [Concomitant]
  8. CALCIUM CARBONATE [Concomitant]
  9. ESTROGEN (ESTROGEN) [Concomitant]
  10. SEASONIQUE [Concomitant]

REACTIONS (2)
  - FATIGUE [None]
  - VISUAL IMPAIRMENT [None]
